FAERS Safety Report 11558020 (Version 4)
Quarter: 2015Q4

REPORT INFORMATION
  Report Type: Report from Study
  Country: US (occurrence: US)
  Receive Date: 20150928
  Receipt Date: 20151009
  Transmission Date: 20160304
  Serious: Yes (Hospitalization, Other)
  Sender: FDA-Public Use
  Company Number: US-AMGEN-USASP2015099103

PATIENT
  Age: 48 Year
  Sex: Female

DRUGS (2)
  1. ENBREL [Suspect]
     Active Substance: ETANERCEPT
     Dosage: 50 MG, 2 TIMES/WK
     Route: 065
     Dates: start: 2014
  2. ENBREL [Suspect]
     Active Substance: ETANERCEPT
     Indication: PSORIASIS
     Dosage: 50 MG, QWK
     Route: 065

REACTIONS (12)
  - Joint stiffness [Unknown]
  - Drug effect incomplete [Unknown]
  - Depression suicidal [Unknown]
  - Hyperchlorhydria [Unknown]
  - Arthropathy [Unknown]
  - Hospitalisation [Unknown]
  - Cholecystectomy [Unknown]
  - Psoriasis [Not Recovered/Not Resolved]
  - Emotional disorder [Unknown]
  - Conversion disorder [Unknown]
  - Weight decreased [Recovered/Resolved]
  - Mobility decreased [Unknown]

NARRATIVE: CASE EVENT DATE: 2008
